FAERS Safety Report 13113590 (Version 1)
Quarter: 2017Q1

REPORT INFORMATION
  Report Type: Spontaneous
  Country: US (occurrence: US)
  Receive Date: 20170113
  Receipt Date: 20170113
  Transmission Date: 20170428
  Serious: Yes (Disabling)
  Sender: FDA-Public Use
  Company Number: None

PATIENT
  Age: 62 Year
  Sex: Female
  Weight: 76.5 kg

DRUGS (2)
  1. VITAMENS [Concomitant]
  2. LATISSE [Suspect]
     Active Substance: BIMATOPROST
     Indication: PRODUCT USED FOR UNKNOWN INDICATION
     Dosage: 1 DROP(S) AT BEDTIME TOPICAL
     Route: 061
     Dates: start: 20130113

REACTIONS (1)
  - Corneal dystrophy [None]
